FAERS Safety Report 20997981 (Version 1)
Quarter: 2022Q2

REPORT INFORMATION
  Report Type: Spontaneous
  Country: US (occurrence: None)
  Receive Date: 20220622
  Receipt Date: 20220622
  Transmission Date: 20220720
  Serious: Yes (unspecified)
  Sender: FDA-Public Use
  Company Number: None

PATIENT
  Age: 47 Year
  Sex: Male
  Weight: 85.5 kg

DRUGS (4)
  1. BARICITINIB [Suspect]
     Active Substance: BARICITINIB
     Dates: start: 20220621, end: 20220622
  2. Azithromycin 500 mg PO [Concomitant]
     Dates: start: 20220621
  3. Ceftriaxone 1 g IV [Concomitant]
     Dates: start: 20220621
  4. Dexamethasone 6 mg PO [Concomitant]
     Dates: start: 20220621

REACTIONS (2)
  - Aspartate aminotransferase increased [None]
  - Therapy cessation [None]

NARRATIVE: CASE EVENT DATE: 20220622
